FAERS Safety Report 9597152 (Version 3)
Quarter: 2014Q1

REPORT INFORMATION
  Report Type: Spontaneous
  Country: US (occurrence: US)
  Receive Date: 20131004
  Receipt Date: 20140225
  Transmission Date: 20141002
  Serious: No
  Sender: FDA-Public Use
  Company Number: US-AMGEN-USASP2013029049

PATIENT
  Age: 56 Year
  Sex: Female
  Weight: 99.77 kg

DRUGS (10)
  1. ENBREL [Suspect]
     Indication: RHEUMATOID ARTHRITIS
     Dosage: 50 MG, QWK
     Route: 058
     Dates: start: 20121101, end: 201212
  2. ATORVASTATIN [Concomitant]
     Dosage: UNK
     Route: 065
  3. FOLIC ACID [Concomitant]
     Dosage: UNK
     Route: 065
  4. IRON [Concomitant]
     Dosage: UNK
     Route: 065
  5. METHOTREXATE [Concomitant]
     Dosage: UNK
     Route: 065
  6. METOPROLOL [Concomitant]
     Dosage: UNK
     Route: 065
  7. PAROXETINE [Concomitant]
     Dosage: UNK
     Route: 065
  8. TRIAM TIAZIDA R [Concomitant]
     Dosage: UNK
     Route: 065
  9. TYLENOL                            /00020001/ [Concomitant]
     Dosage: UNK
     Route: 065
  10. VITAMIN D                          /00107901/ [Concomitant]
     Dosage: UNK
     Route: 065

REACTIONS (6)
  - Local swelling [Not Recovered/Not Resolved]
  - Arthritis [Not Recovered/Not Resolved]
  - Rash [Not Recovered/Not Resolved]
  - Pain in extremity [Not Recovered/Not Resolved]
  - Drug effect incomplete [Not Recovered/Not Resolved]
  - Onychomycosis [Unknown]
